FAERS Safety Report 16507837 (Version 1)
Quarter: 2019Q3

REPORT INFORMATION
  Report Type: Report from Study
  Country: CN (occurrence: CN)
  Receive Date: 20190702
  Receipt Date: 20190702
  Transmission Date: 20191004
  Serious: Yes (Other)
  Sender: FDA-Public Use
  Company Number: CN-ROCHE-2341304

PATIENT

DRUGS (3)
  1. CAPECITABINE. [Suspect]
     Active Substance: CAPECITABINE
     Indication: NASOPHARYNGEAL CANCER
     Dosage: FOR 2 CYCLES
     Route: 048
  2. CISPLATIN. [Suspect]
     Active Substance: CISPLATIN
     Route: 065
  3. CISPLATIN. [Suspect]
     Active Substance: CISPLATIN
     Indication: NASOPHARYNGEAL CANCER
     Route: 065

REACTIONS (12)
  - Granulocyte count decreased [Unknown]
  - Mucosal inflammation [Unknown]
  - Pigmentation disorder [Recovered/Resolved]
  - Liver injury [Unknown]
  - Pruritus [Recovered/Resolved]
  - Vomiting [Unknown]
  - Diarrhoea [Unknown]
  - Skin exfoliation [Recovered/Resolved]
  - Nausea [Unknown]
  - Anaemia [Unknown]
  - Skin reaction [Recovered/Resolved]
  - Platelet count decreased [Unknown]
